FAERS Safety Report 24798629 (Version 1)
Quarter: 2025Q1

REPORT INFORMATION
  Report Type: Spontaneous
  Country: MN (occurrence: MN)
  Receive Date: 20250102
  Receipt Date: 20250102
  Transmission Date: 20250409
  Serious: Yes (Other)
  Sender: ALKEM
  Company Number: MN-ALKEM LABORATORIES LIMITED-MN-ALKEM-2023-14626

PATIENT
  Age: 34 Year
  Sex: Female

DRUGS (1)
  1. TACROLIMUS [Suspect]
     Active Substance: TACROLIMUS
     Indication: Immunosuppressant drug therapy
     Route: 065

REACTIONS (5)
  - Graft infection [Unknown]
  - Liver abscess [Recovering/Resolving]
  - Venoocclusive liver disease [Unknown]
  - Drug level increased [Recovered/Resolved]
  - Escherichia infection [Unknown]
